FAERS Safety Report 9438839 (Version 2)
Quarter: 2013Q3

REPORT INFORMATION
  Report Type: Spontaneous
  Country: GB (occurrence: GB)
  Receive Date: 20130802
  Receipt Date: 20130904
  Transmission Date: 20140515
  Serious: Yes (Hospitalization, Other)
  Sender: FDA-Public Use
  Company Number: GB-VERTEX PHARMACEUTICALS INC-2013-008481

PATIENT
  Sex: Male
  Weight: 97.4 kg

DRUGS (4)
  1. INCIVO [Suspect]
     Indication: CHRONIC HEPATITIS C
     Dosage: 750 MG, UNK
     Route: 048
     Dates: start: 20130430, end: 20130729
  2. RIBAVIRIN [Suspect]
     Indication: PRODUCT USED FOR UNKNOWN INDICATION
     Dosage: DOSAGE FORM: TABLETS
     Route: 048
     Dates: start: 20130430
  3. RIBAVIRIN [Suspect]
     Indication: CHRONIC HEPATITIS C
  4. PEGASYS [Suspect]
     Indication: CHRONIC HEPATITIS C
     Dosage: DOSAGE FORM: UNSPECIFIED
     Route: 058
     Dates: start: 20130430

REACTIONS (2)
  - Anal abscess [Unknown]
  - Haematoma [Unknown]
